FAERS Safety Report 10005045 (Version 2)
Quarter: 2014Q2

REPORT INFORMATION
  Report Type: Spontaneous
  Country: FR (occurrence: FR)
  Receive Date: 20140312
  Receipt Date: 20140521
  Transmission Date: 20141212
  Serious: Yes (Death, Life-Threatening)
  Sender: FDA-Public Use
  Company Number: FR-BAXTER-2014BAX011184

PATIENT
  Age: 73 Year
  Sex: Male
  Weight: 69 kg

DRUGS (8)
  1. BREVIBLOC 2,5 G/10 ML, SOLUTION INJECTABLE ? DILUER (I.V.) [Suspect]
     Indication: SUPRAVENTRICULAR TACHYCARDIA
     Route: 042
     Dates: start: 20140203, end: 20140203
  2. BREVIBLOC 2,5 G/10 ML, SOLUTION INJECTABLE ? DILUER (I.V.) [Suspect]
     Dosage: 21 ML/HR
     Route: 042
     Dates: start: 20140203, end: 20140203
  3. CORDARONE [Suspect]
     Indication: ARRHYTHMIA
     Route: 048
     Dates: start: 20140203
  4. MAGNESIUM [Suspect]
     Indication: ATRIAL FIBRILLATION
  5. NORADRENALINE [Concomitant]
     Indication: SEPTIC SHOCK
     Route: 042
     Dates: start: 20140203
  6. DAPTOMYCIN [Concomitant]
     Indication: PRODUCT USED FOR UNKNOWN INDICATION
     Route: 065
  7. TAZOCILLINE [Concomitant]
     Indication: PRODUCT USED FOR UNKNOWN INDICATION
     Route: 065
  8. GENTAMYCIN [Concomitant]
     Indication: PRODUCT USED FOR UNKNOWN INDICATION
     Route: 065

REACTIONS (3)
  - Pulseless electrical activity [Recovered/Resolved]
  - Cardiac arrest [Fatal]
  - Septic shock [Fatal]
